FAERS Safety Report 8607172-3 (Version None)
Quarter: 2012Q3

REPORT INFORMATION
  Report Type: 
  Country: None (occurrence: None)
  Receive Date: 20120821
  Receipt Date: 20120813
  Transmission Date: 20120928
  Serious: No
  Sender: FDA-Public Use
  Company Number: US-BIOGENIDEC-2012BI031460

PATIENT
  Age: 47 Year
  Sex: Female

DRUGS (3)
  1. TYSABRI [Suspect]
     Indication: MULTIPLE SCLEROSIS
     Route: 042
     Dates: start: 20080723, end: 20081209
  2. TYSABRI [Suspect]
     Route: 042
     Dates: start: 20091026, end: 20101018
  3. TYSABRI [Suspect]
     Route: 042
     Dates: start: 20111011

REACTIONS (1)
  - ORAL DISORDER [None]
